FAERS Safety Report 7213823-0 (Version None)
Quarter: 2011Q1

REPORT INFORMATION
  Report Type: 
  Country: None (occurrence: None)
  Receive Date: 20110106
  Receipt Date: 20101220
  Transmission Date: 20110831
  Serious: Yes (Other)
  Sender: FDA-Public Use
  Company Number: PHHY2010CA85387

PATIENT
  Sex: Male

DRUGS (2)
  1. SANDOSTATIN [Suspect]
     Indication: DIARRHOEA
     Dosage: 2 ML, Q4H
     Route: 058
     Dates: start: 20100601
  2. CHEMOTHERAPEUTICS NOS [Concomitant]

REACTIONS (4)
  - RENAL SURGERY [None]
  - ABDOMINAL NEOPLASM [None]
  - DRUG INEFFECTIVE [None]
  - DIARRHOEA [None]
